FAERS Safety Report 8950626 (Version 1)
Quarter: 2012Q4

REPORT INFORMATION
  Report Type: 
  Country: JP (occurrence: JP)
  Receive Date: 20121207
  Receipt Date: 20121207
  Transmission Date: 20130627
  Serious: Yes (Other)
  Sender: FDA-Public Use
  Company Number: JP-BAYER-2012-126162

PATIENT
  Sex: Female

DRUGS (1)
  1. YAZ [Suspect]
     Indication: ENDOMETRIOSIS
     Route: 048

REACTIONS (2)
  - Type 1 diabetes mellitus [None]
  - Off label use [None]
